FAERS Safety Report 11176006 (Version 3)
Quarter: 2015Q3

REPORT INFORMATION
  Report Type: Report from Study
  Country: NZ (occurrence: NZ)
  Receive Date: 20150609
  Receipt Date: 20150703
  Transmission Date: 20151125
  Serious: Yes (Hospitalization)
  Sender: FDA-Public Use
  Company Number: NZ-AMGEN-NZLCT2015056018

PATIENT
  Age: 69 Year
  Sex: Male
  Weight: 88.6 kg

DRUGS (11)
  1. CARFILZOMIB [Suspect]
     Active Substance: CARFILZOMIB
     Indication: PLASMA CELL MYELOMA
     Dosage: 36 MG/M2, PER CHEMO REGIM
     Route: 042
     Dates: start: 20140805
  2. ACYCLOVIR                          /00587301/ [Concomitant]
     Active Substance: ACYCLOVIR
     Indication: ANTIVIRAL PROPHYLAXIS
     Dosage: 400 MG, UNK
     Route: 048
     Dates: start: 20140930
  3. APREPITANT. [Concomitant]
     Active Substance: APREPITANT
     Indication: NAUSEA
     Dosage: 80 MG, UNK
     Route: 048
     Dates: start: 20150211
  4. MELPHALAN [Suspect]
     Active Substance: MELPHALAN
     Indication: PLASMA CELL MYELOMA
     Dosage: 18 MG, PER CHEMO REGIM
     Route: 048
     Dates: start: 20140805
  5. PARACETAMOL [Concomitant]
     Active Substance: ACETAMINOPHEN
     Indication: RESPIRATORY TRACT INFECTION
     Dosage: 1000 MG, AS NECESSARY
     Route: 048
     Dates: start: 20140928
  6. CLEXANE [Concomitant]
     Active Substance: ENOXAPARIN SODIUM
  7. PREDNISONE. [Suspect]
     Active Substance: PREDNISONE
     Indication: PLASMA CELL MYELOMA
     Dosage: 130 MG, PER CHEMO REGIM
     Route: 048
     Dates: start: 20140805
  8. PHOLCODINE [Concomitant]
     Active Substance: PHOLCODINE
     Indication: RESPIRATORY TRACT INFECTION
     Dosage: 10 ML, AS NECESSARY
     Route: 048
     Dates: start: 20140929
  9. ONDANSETRON [Concomitant]
     Active Substance: ONDANSETRON
     Indication: NAUSEA
     Dosage: 8 MG, AS NECESSARY
     Route: 048
     Dates: start: 20141208
  10. LORATADINE. [Concomitant]
     Active Substance: LORATADINE
     Indication: RASH MACULO-PAPULAR
     Dosage: 10 MG, UNK
     Route: 048
     Dates: start: 20150323
  11. PAMIDRONATE [Concomitant]
     Active Substance: PAMIDRONATE DISODIUM
     Indication: PROPHYLAXIS
     Dosage: 30 MG, QMO
     Route: 042
     Dates: start: 20140902

REACTIONS (1)
  - Pulmonary embolism [Recovered/Resolved]

NARRATIVE: CASE EVENT DATE: 20150605
